FAERS Safety Report 19159819 (Version 1)
Quarter: 2021Q2

REPORT INFORMATION
  Report Type: Spontaneous
  Country: JP (occurrence: JP)
  Receive Date: 20210420
  Receipt Date: 20210420
  Transmission Date: 20210717
  Serious: Yes (Hospitalization, Other)
  Sender: FDA-Public Use
  Company Number: JP-SUN PHARMACEUTICAL INDUSTRIES LTD-2021R1-291442

PATIENT
  Age: 39 Year
  Sex: Female
  Weight: 59 kg

DRUGS (4)
  1. APRESOLINE HYDROCHLORIDE [Suspect]
     Active Substance: HYDRALAZINE HYDROCHLORIDE
     Indication: PRODUCT USED FOR UNKNOWN INDICATION
     Dosage: 2 TABLET, DAILY
     Route: 048
  2. RITODRINE TABLETS 5MGPP [Suspect]
     Active Substance: RITODRINE
     Indication: UTERINE CONTRACTIONS ABNORMAL
     Dosage: 3 MILLIGRAM, DAILY
     Route: 048
  3. METHYLDOPA. [Suspect]
     Active Substance: METHYLDOPA
     Indication: BLOOD PRESSURE INCREASED
     Dosage: 3 TABLET, DAILY
     Route: 048
  4. MAGNESIUM SULFATE. [Suspect]
     Active Substance: MAGNESIUM SULFATE
     Indication: ECLAMPSIA
     Dosage: UNK
     Route: 065

REACTIONS (7)
  - Carotid artery aneurysm [Unknown]
  - Exposure during pregnancy [Unknown]
  - Drug ineffective [Unknown]
  - Hypertension [Recovering/Resolving]
  - Malaise [Unknown]
  - Premature delivery [Unknown]
  - Dizziness [Unknown]
